FAERS Safety Report 19145182 (Version 1)
Quarter: 2021Q2

REPORT INFORMATION
  Report Type: Spontaneous
  Country: US (occurrence: US)
  Receive Date: 20210416
  Receipt Date: 20210416
  Transmission Date: 20210717
  Serious: No
  Sender: FDA-Public Use
  Company Number: US-BAYER-2021-121197

PATIENT
  Age: 25 Year
  Sex: Female

DRUGS (2)
  1. CLARITIN [Suspect]
     Active Substance: LORATADINE
     Indication: HYPERSENSITIVITY
     Dosage: 1 DF
     Route: 048
     Dates: start: 202002
  2. CLARITIN [Suspect]
     Active Substance: LORATADINE
     Indication: NASOPHARYNGITIS

REACTIONS (5)
  - Urticaria [Unknown]
  - Pruritus [Unknown]
  - Fatigue [Unknown]
  - Drug ineffective [Unknown]
  - Insomnia [Unknown]

NARRATIVE: CASE EVENT DATE: 202002
